FAERS Safety Report 8593532-6 (Version None)
Quarter: 2012Q3

REPORT INFORMATION
  Report Type: 
  Country: None (occurrence: None)
  Receive Date: 20120814
  Receipt Date: 20120807
  Transmission Date: 20120928
  Serious: Yes (Other)
  Sender: FDA-Public Use
  Company Number: JP-VERTEX PHARMACEUTICALS INC.-AE-2012-011984

PATIENT
  Age: 67 Year
  Sex: Female

DRUGS (12)
  1. BENIDIPINE HYDROCHLORIDE [Concomitant]
     Route: 048
     Dates: end: 20120623
  2. LENDORMIN D [Concomitant]
     Route: 048
     Dates: start: 20120619, end: 20120629
  3. URSO 250 [Concomitant]
     Route: 048
     Dates: start: 20120704
  4. CONIEL [Concomitant]
     Route: 048
     Dates: start: 20120704
  5. ZOLPIDEM [Concomitant]
     Route: 048
     Dates: start: 20120704
  6. FAMOTIDINE [Concomitant]
     Route: 048
     Dates: start: 20120704
  7. RIBAVIRIN [Concomitant]
     Indication: HEPATITIS C
     Route: 048
     Dates: start: 20120620, end: 20120621
  8. URSODIOL [Concomitant]
     Route: 048
     Dates: end: 20120621
  9. TELAVIC (TELAPREVIR) [Suspect]
     Indication: HEPATITIS C
     Route: 048
     Dates: start: 20120620, end: 20120621
  10. PEGINTERFERON ALFA-2B [Concomitant]
     Indication: HEPATITIS C
     Route: 058
     Dates: start: 20120620, end: 20120621
  11. FAMOTIDINE D [Concomitant]
     Route: 048
     Dates: end: 20120623
  12. LIVALO [Concomitant]
     Route: 048
     Dates: end: 20120622

REACTIONS (1)
  - RENAL IMPAIRMENT [None]
